FAERS Safety Report 20909471 (Version 4)
Quarter: 2022Q4

REPORT INFORMATION
  Report Type: Report from Study
  Country: CA (occurrence: CA)
  Receive Date: 20220603
  Receipt Date: 20221014
  Transmission Date: 20230113
  Serious: Yes (Other)
  Sender: FDA-Public Use
  Company Number: CA-JNJFOC-20220601573

PATIENT
  Age: 33 Year
  Sex: Male
  Weight: 79 kg

DRUGS (1)
  1. REMICADE [Suspect]
     Active Substance: INFLIXIMAB
     Indication: Colitis ulcerative
     Dosage: RECEIVED INFUSION ON 12/APR/2022.?EXPIRY DATE - 31-JAN-2025
     Route: 041
     Dates: start: 20150106, end: 20221007

REACTIONS (3)
  - Schwannoma [Not Recovered/Not Resolved]
  - Incision site complication [Unknown]
  - Off label use [Unknown]

NARRATIVE: CASE EVENT DATE: 20150106
